FAERS Safety Report 6579659-9 (Version None)
Quarter: 2010Q1

REPORT INFORMATION
  Report Type: 
  Country: None (occurrence: None)
  Receive Date: 20100212
  Receipt Date: 20100208
  Transmission Date: 20100710
  Serious: Yes (Hospitalization)
  Sender: FDA-Public Use
  Company Number: DK-ROCHE-652699

PATIENT
  Sex: Male
  Weight: 126 kg

DRUGS (9)
  1. TOCILIZUMAB [Suspect]
     Indication: RHEUMATOID ARTHRITIS
     Dosage: LAST DOSE PRIOR TO SAE ON 30 JULY 2009; FORM: INFUSION
     Route: 042
     Dates: start: 20090401
  2. TODOLAC [Concomitant]
     Dosage: FREQUENCY: PRN
     Dates: start: 20080815
  3. PANODIL RETARD [Concomitant]
     Dosage: DRUG NAME:PANODIL R
     Dates: start: 20080801
  4. PANTOPRAZOLE [Concomitant]
     Dates: start: 19990101
  5. COZAAR [Concomitant]
     Dates: start: 19950101
  6. METFORMIN [Concomitant]
     Dates: start: 20060101
  7. CARVEDILOL [Concomitant]
     Dates: start: 20080501
  8. XALATAN [Concomitant]
     Dosage: TDD REPORTED: 1 DR
     Dates: start: 19930101
  9. SIMVASTATIN [Concomitant]
     Dates: start: 20090601

REACTIONS (1)
  - DEEP VEIN THROMBOSIS [None]
